FAERS Safety Report 8204033-9 (Version None)
Quarter: 2012Q1

REPORT INFORMATION
  Report Type: 
  Country: None (occurrence: None)
  Receive Date: 20120313
  Receipt Date: 20120306
  Transmission Date: 20120608
  Serious: No
  Sender: FDA-Public Use
  Company Number: US-PFIZER INC-2011261378

PATIENT
  Sex: Female
  Weight: 66 kg

DRUGS (1)
  1. NIFEDIPINE [Suspect]
     Dosage: UNK
     Dates: start: 20111001

REACTIONS (2)
  - PRURITUS [None]
  - BLOOD PRESSURE INADEQUATELY CONTROLLED [None]
